FAERS Safety Report 8301225-5 (Version None)
Quarter: 2012Q2

REPORT INFORMATION
  Report Type: 
  Country: None (occurrence: None)
  Receive Date: 20120420
  Receipt Date: 20120420
  Transmission Date: 20120825
  Serious: Yes (Hospitalization)
  Sender: FDA-Public Use
  Company Number: None

PATIENT
  Sex: Male
  Weight: 55.8 kg

DRUGS (1)
  1. MULTIHANCE [Suspect]
     Dosage: 12ML

REACTIONS (3)
  - PRURITUS [None]
  - PARAESTHESIA [None]
  - URTICARIA [None]
